FAERS Safety Report 7103549-6 (Version None)
Quarter: 2010Q4

REPORT INFORMATION
  Report Type: 
  Country: None (occurrence: None)
  Receive Date: 20101115
  Receipt Date: 20101015
  Transmission Date: 20110411
  Serious: Yes (Other)
  Sender: FDA-Public Use
  Company Number: US-ASTRAZENECA-2010SE48971

PATIENT
  Age: 573 Month
  Sex: Female
  Weight: 54 kg

DRUGS (2)
  1. SYMBICORT [Suspect]
     Indication: ASTHMA
     Dosage: 160/4.5 MG, DAILY
     Route: 055
     Dates: start: 20100909, end: 20101015
  2. SYMBICORT [Suspect]
     Dosage: 160/4.5 MG, DAILY
     Route: 055
     Dates: start: 20101015

REACTIONS (2)
  - ABNORMAL SENSATION IN EYE [None]
  - EYE PAIN [None]
